FAERS Safety Report 25572307 (Version 4)
Quarter: 2025Q3

REPORT INFORMATION
  Report Type: Spontaneous
  Country: EU (occurrence: EU)
  Receive Date: 20250717
  Receipt Date: 20250905
  Transmission Date: 20251021
  Serious: Yes (Other)
  Sender: ABBVIE
  Company Number: EU-ABBVIE-6374270

PATIENT
  Age: 61 Year
  Sex: Female
  Weight: 67 kg

DRUGS (8)
  1. SKYRIZI [Suspect]
     Active Substance: RISANKIZUMAB-RZAA
     Indication: Psoriasis
     Route: 058
     Dates: start: 202402, end: 202402
  2. SKYRIZI [Suspect]
     Active Substance: RISANKIZUMAB-RZAA
     Route: 058
  3. SKYRIZI [Suspect]
     Active Substance: RISANKIZUMAB-RZAA
     Dosage: 150 MG
     Route: 058
     Dates: end: 202507
  4. LEVOTHYROXINE SODIUM [Concomitant]
     Active Substance: LEVOTHYROXINE SODIUM
     Indication: Thyroid hormones decreased
     Dosage: 50 MICROGRAM
     Route: 048
  5. Ferretab [Concomitant]
     Indication: Anaemia
     Dosage: 152 MG /0,5 MG CAPSULES
     Route: 048
  6. ENTECAVIR [Concomitant]
     Active Substance: ENTECAVIR
     Indication: Hepatitis B
     Dosage: 0.5 MILLIGRAM
     Route: 048
  7. Sanoral hct [Concomitant]
     Indication: Hypertension
     Dosage: 40 MG/10 MG/12,5 MG TABLET
     Route: 048
  8. OMEPRAZOLE [Concomitant]
     Active Substance: OMEPRAZOLE
     Indication: Product used for unknown indication
     Dosage: 20 MILLIGRAM
     Route: 048

REACTIONS (8)
  - Hepatic cirrhosis [Unknown]
  - Adenocarcinoma gastric [Unknown]
  - Viral infection [Unknown]
  - Abdominal pain upper [Unknown]
  - Leukocytosis [Unknown]
  - Anaemia [Unknown]
  - Neutrophilia [Unknown]
  - Disease risk factor [Unknown]

NARRATIVE: CASE EVENT DATE: 20250312
